FAERS Safety Report 6504778-2 (Version None)
Quarter: 2009Q4

REPORT INFORMATION
  Report Type: 
  Country: None (occurrence: None)
  Receive Date: 20091218
  Receipt Date: 20091210
  Transmission Date: 20100525
  Serious: Yes (Other)
  Sender: FDA-Public Use
  Company Number: CA-ASTRAZENECA-2009SE27968

PATIENT
  Age: 35 Year
  Sex: Female

DRUGS (2)
  1. SEROQUEL XR [Suspect]
     Indication: MENTAL DISORDER
     Route: 048
     Dates: start: 20091002, end: 20091007
  2. CYMBALTA [Concomitant]
     Indication: MENTAL DISORDER
     Dosage: 60, DAILY
     Route: 048
     Dates: start: 20090401

REACTIONS (1)
  - SELF-INJURIOUS IDEATION [None]
